FAERS Safety Report 10524082 (Version 1)
Quarter: 2014Q4

REPORT INFORMATION
  Report Type: Spontaneous
  Country: US (occurrence: None)
  Receive Date: 20141015
  Receipt Date: 20141015
  Transmission Date: 20150528
  Serious: Yes (Other)
  Sender: FDA-Public Use
  Company Number: None

PATIENT
  Age: 44 Year
  Sex: Female
  Weight: 54.43 kg

DRUGS (1)
  1. NUVIGIL [Suspect]
     Active Substance: ARMODAFINIL
     Indication: DRUG DISPENSING ERROR
     Route: 048
     Dates: start: 20140926

REACTIONS (8)
  - Nausea [None]
  - Disorientation [None]
  - Headache [None]
  - Vomiting [None]
  - Dizziness [None]
  - Drug dispensing error [None]
  - Insomnia [None]
  - Wrong drug administered [None]

NARRATIVE: CASE EVENT DATE: 20140926
